FAERS Safety Report 15016927 (Version 2)
Quarter: 2018Q3

REPORT INFORMATION
  Report Type: Spontaneous
  Country: US (occurrence: US)
  Receive Date: 20180615
  Receipt Date: 20180729
  Transmission Date: 20181010
  Serious: Yes (Other)
  Sender: FDA-Public Use
  Company Number: US-JNJFOC-20180602073

PATIENT
  Sex: Male

DRUGS (6)
  1. MECLIZINE [Concomitant]
     Active Substance: MECLIZINE HYDROCHLORIDE
     Route: 065
  2. AZOPT [Concomitant]
     Active Substance: BRINZOLAMIDE
     Route: 065
  3. CASODEX [Concomitant]
     Active Substance: BICALUTAMIDE
     Route: 065
  4. ZYTIGA [Suspect]
     Active Substance: ABIRATERONE ACETATE
     Indication: PROSTATE CANCER
     Dosage: STRENGTH 500 MG, 57894?0195?06
     Route: 048
     Dates: start: 20180404, end: 2018
  5. ASPIRIN. [Concomitant]
     Active Substance: ASPIRIN
     Route: 065
  6. LUMIGAN [Concomitant]
     Active Substance: BIMATOPROST
     Route: 065

REACTIONS (1)
  - Drug ineffective [Unknown]

NARRATIVE: CASE EVENT DATE: 2018
